FAERS Safety Report 8249989-3 (Version None)
Quarter: 2012Q2

REPORT INFORMATION
  Report Type: 
  Country: None (occurrence: None)
  Receive Date: 20120402
  Receipt Date: 20120327
  Transmission Date: 20120825
  Serious: No
  Sender: FDA-Public Use
  Company Number: US-PFIZER INC-2012078966

PATIENT
  Sex: Female
  Weight: 76.19 kg

DRUGS (9)
  1. CALCIUM [Concomitant]
     Dosage: UNK
  2. VITAMIN D [Concomitant]
     Dosage: UNK
  3. LYRICA [Suspect]
     Dosage: 150 MG, 2X/DAY
     Route: 048
  4. LOVAZA [Concomitant]
     Dosage: UNK
  5. SULFUR [Suspect]
     Dosage: UNK
  6. LYRICA [Suspect]
     Indication: FIBROMYALGIA
     Dosage: 50 MG, 2X/DAY
     Route: 048
  7. HYDROCODONE BITARTRATE [Suspect]
     Indication: PAIN
     Dosage: UNK
  8. COENZYME Q10 [Concomitant]
     Dosage: UNK
  9. METHADONE [Concomitant]
     Indication: PAIN
     Dosage: 60 MG, 3X/DAY

REACTIONS (3)
  - DRUG INEFFECTIVE [None]
  - DRUG HYPERSENSITIVITY [None]
  - OEDEMA PERIPHERAL [None]
